FAERS Safety Report 6764054-X (Version None)
Quarter: 2010Q2

REPORT INFORMATION
  Report Type: 
  Country: None (occurrence: None)
  Receive Date: 20100608
  Receipt Date: 20100525
  Transmission Date: 20101027
  Serious: Yes (Life-Threatening, Hospitalization)
  Sender: FDA-Public Use
  Company Number: 010819

PATIENT
  Sex: Female

DRUGS (13)
  1. KEPPRA [Suspect]
     Dosage: 3 G, 100MG/ML; INTRAVENOUS (NOT OTHERWISE SPECIFIED)
     Route: 042
     Dates: start: 20100309, end: 20100317
  2. NESDONAL (NESDONAL) (NOT SPECIFIED) [Suspect]
     Dosage: 6 G, 1G, INTRAVENOUS (NOT OTHERWISE SPECIFIED)
     Route: 042
     Dates: start: 20100308, end: 20100323
  3. INEXIUM (INEXIUM) (NOT SPECIFIED) [Suspect]
     Dosage: 40 MG QD, INTRAVENOUS (NOT OTHERWISE SPECIFIED)
     Route: 042
     Dates: start: 20100308, end: 20100321
  4. HEPARIN [Concomitant]
  5. PERFALGAN [Concomitant]
  6. AUGMENTIN '125' [Concomitant]
  7. NORADRENALINE [Concomitant]
  8. ROCEPHIN [Concomitant]
  9. IMIPENEM AND CILASTATIN [Concomitant]
  10. HYDROCORTISONE [Concomitant]
  11. TAZOCILLINE [Concomitant]
  12. AMIKIN [Concomitant]
  13. DIPRIVAN [Concomitant]

REACTIONS (3)
  - AGRANULOCYTOSIS [None]
  - ANAEMIA [None]
  - THROMBOCYTOPENIA [None]
